FAERS Safety Report 23895810 (Version 1)
Quarter: 2024Q2

REPORT INFORMATION
  Report Type: Spontaneous
  Country: US (occurrence: None)
  Receive Date: 20240523
  Receipt Date: 20240523
  Transmission Date: 20240716
  Serious: Yes (Hospitalization)
  Sender: FDA-Public Use
  Company Number: None

PATIENT
  Age: 72 Year
  Sex: Male
  Weight: 85 kg

DRUGS (1)
  1. IODIXANOL [Suspect]
     Active Substance: IODIXANOL
     Indication: Pain
     Dosage: FREQUENCY : ONCE;?
     Route: 042
     Dates: start: 20240311, end: 20240311

REACTIONS (13)
  - Anaphylactic reaction [None]
  - Cough [None]
  - Rash [None]
  - Dyspnoea [None]
  - Abdominal pain [None]
  - Nausea [None]
  - Diarrhoea [None]
  - Anxiety [None]
  - Therapy change [None]
  - Abdominal tenderness [None]
  - Oxygen saturation decreased [None]
  - Wheezing [None]
  - Contrast media reaction [None]

NARRATIVE: CASE EVENT DATE: 20240311
